FAERS Safety Report 18484741 (Version 1)
Quarter: 2020Q4

REPORT INFORMATION
  Report Type: Spontaneous
  Country: JP (occurrence: JP)
  Receive Date: 20201110
  Receipt Date: 20201110
  Transmission Date: 20210114
  Serious: Yes (Other)
  Sender: FDA-Public Use
  Company Number: JP-GLAXOSMITHKLINE-JP2020JPN218942

PATIENT
  Age: 9 Decade
  Sex: Male

DRUGS (3)
  1. AVOLVE [Suspect]
     Active Substance: DUTASTERIDE
     Dosage: UNK
     Route: 065
  2. BETANIS [Suspect]
     Active Substance: MIRABEGRON
     Dosage: UNK
     Route: 065
  3. TOVIAZ [Suspect]
     Active Substance: FESOTERODINE FUMARATE
     Dosage: 8 MG
     Route: 048

REACTIONS (2)
  - Therapeutic response decreased [Unknown]
  - Urinary retention [Recovered/Resolved]
